FAERS Safety Report 8539132-5 (Version None)
Quarter: 2012Q3

REPORT INFORMATION
  Report Type: 
  Country: None (occurrence: None)
  Receive Date: 20120713
  Receipt Date: 20120629
  Transmission Date: 20120928
  Serious: Yes (Hospitalization)
  Sender: FDA-Public Use
  Company Number: 2012AP002044

PATIENT
  Age: 60 Year
  Sex: Female

DRUGS (4)
  1. AMLODIPINE BESYLATE [Suspect]
     Indication: PRODUCT USED FOR UNKNOWN INDICATION
     Dosage: 10 MG;BID;PO
     Route: 048
  2. ASPIRIN [Concomitant]
  3. METOPROLOL TARTRATE [Concomitant]
  4. NIFEDIPINE [Concomitant]

REACTIONS (8)
  - INTESTINAL OBSTRUCTION [None]
  - SELF-MEDICATION [None]
  - LACTIC ACIDOSIS [None]
  - CARDIOGENIC SHOCK [None]
  - TOXICITY TO VARIOUS AGENTS [None]
  - ACCIDENTAL OVERDOSE [None]
  - RESPIRATORY FAILURE [None]
  - ILEUS PARALYTIC [None]
